FAERS Safety Report 5884376-4 (Version None)
Quarter: 2008Q3

REPORT INFORMATION
  Report Type: 
  Country: None (occurrence: None)
  Receive Date: 20080915
  Receipt Date: 20080903
  Transmission Date: 20090109
  Serious: Yes (Disabling, Other)
  Sender: FDA-Public Use
  Company Number: FR-PFIZER INC-2008062844

PATIENT
  Sex: Female
  Weight: 67 kg

DRUGS (6)
  1. CHANTIX [Suspect]
     Indication: SMOKING CESSATION THERAPY
     Route: 048
     Dates: start: 20080611
  2. MIRTAZAPINE [Concomitant]
  3. ALPRAZOLAM [Concomitant]
  4. PAROXETINE HCL [Concomitant]
  5. ZOPICLONE [Concomitant]
  6. CLIMAXOL [Concomitant]

REACTIONS (1)
  - MAJOR DEPRESSION [None]
